FAERS Safety Report 6074409-7 (Version None)
Quarter: 2009Q1

REPORT INFORMATION
  Report Type: 
  Country: None (occurrence: None)
  Receive Date: 20090211
  Receipt Date: 20090127
  Transmission Date: 20090719
  Serious: Yes (Life-Threatening, Hospitalization, Disabling)
  Sender: FDA-Public Use
  Company Number: DE-GENENTECH-276698

PATIENT
  Sex: Male

DRUGS (4)
  1. BEVACIZUMAB [Suspect]
     Indication: NON-SMALL CELL LUNG CANCER
     Dosage: 900 MG, UNK
     Route: 042
     Dates: end: 20090106
  2. CARBOPLATIN [Suspect]
     Indication: NON-SMALL CELL LUNG CANCER
     Dosage: 650 MG, UNK
     Route: 042
     Dates: end: 20090106
  3. VINORELBINE [Suspect]
     Indication: NON-SMALL CELL LUNG CANCER
     Dosage: 70 MG, UNK
     Route: 042
     Dates: end: 20090106
  4. GRANISETRON [Concomitant]
     Indication: NAUSEA
     Dosage: 3 MG, UNK
     Dates: end: 20090106

REACTIONS (1)
  - HEMIPARESIS [None]
